FAERS Safety Report 4597782-5 (Version None)
Quarter: 2005Q1

REPORT INFORMATION
  Report Type: 
  Country: None (occurrence: None)
  Receive Date: 20050125
  Receipt Date: 20041019
  Transmission Date: 20050727
  Serious: No
  Sender: FDA-Public Use
  Company Number: USA040977367

PATIENT
  Age: 72 Year
  Sex: Female
  Weight: 56 kg

DRUGS (7)
  1. FORTEO [Suspect]
     Indication: OSTEOPOROSIS
     Dosage: 20 UG/1 DAY
     Dates: start: 20040101
  2. CALCIUM CITRATE W/VITAMIN D NOS [Concomitant]
  3. METOPROLOL [Concomitant]
  4. LIPITOR [Concomitant]
  5. ADVAIR DISKUS 100/50 [Concomitant]
  6. SYNTHROID [Concomitant]
  7. LISINOPRIL AND HYDROCHLOROTHIAZIDE [Concomitant]

REACTIONS (1)
  - BLOOD CALCIUM INCREASED [None]
